FAERS Safety Report 6180565-2 (Version None)
Quarter: 2009Q2

REPORT INFORMATION
  Report Type: 
  Country: None (occurrence: None)
  Receive Date: 20090504
  Receipt Date: 20090504
  Transmission Date: 20091009
  Serious: Yes (Life-Threatening)
  Sender: FDA-Public Use
  Company Number: None

PATIENT
  Age: 40 Year
  Sex: Female
  Weight: 78.0187 kg

DRUGS (3)
  1. BETASERON [Suspect]
     Indication: MULTIPLE SCLEROSIS
     Dosage: 1 DAILY SUBCUTANE
     Route: 058
     Dates: start: 20081026, end: 20090102
  2. MOTRIN [Concomitant]
  3. PRILOSEC [Concomitant]

REACTIONS (3)
  - COLITIS ULCERATIVE [None]
  - HAEMANGIOMA OF LIVER [None]
  - INFLUENZA LIKE ILLNESS [None]
